FAERS Safety Report 5712304-0 (Version None)
Quarter: 2008Q2

REPORT INFORMATION
  Report Type: 
  Country: None (occurrence: None)
  Receive Date: 20080421
  Receipt Date: 20080421
  Transmission Date: 20081010
  Serious: Yes (Hospitalization)
  Sender: FDA-Public Use
  Company Number: None

PATIENT
  Age: 81 Year
  Sex: Male

DRUGS (2)
  1. LEVOFLOXACIN [Suspect]
     Indication: GASTROINTESTINAL INFECTION
     Dosage: 500MG DAILY PO
     Route: 048
     Dates: start: 20071103, end: 20071106
  2. LSINOPRIL  40MG [Suspect]
     Indication: HYPERTENSION
     Dosage: 40MG DAILY PO  (DURATION: LONG TERM)
     Route: 048

REACTIONS (5)
  - ANGIOEDEMA [None]
  - APHASIA [None]
  - RESPIRATORY DISORDER [None]
  - SENSORY DISTURBANCE [None]
  - SWOLLEN TONGUE [None]
